FAERS Safety Report 14076901 (Version 1)
Quarter: 2017Q4

REPORT INFORMATION
  Report Type: Other
  Country: US (occurrence: US)
  Receive Date: 20171011
  Receipt Date: 20171011
  Transmission Date: 20180321
  Serious: Yes (Other)
  Sender: FDA-Public Use
  Company Number: US-INTERCEPT-PMOCA2016000307

PATIENT

DRUGS (7)
  1. BUDESONIDE. [Concomitant]
     Active Substance: BUDESONIDE
  2. MIRALAX [Concomitant]
     Active Substance: POLYETHYLENE GLYCOL 3350
  3. OCALIVA [Suspect]
     Active Substance: OBETICHOLIC ACID
     Indication: BILIARY CIRRHOSIS PRIMARY
     Dosage: 5 MG, QD
     Route: 048
     Dates: start: 20160802, end: 201608
  4. FLONASE                            /00908302/ [Concomitant]
     Active Substance: MOMETASONE FUROATE
  5. URSODIOL. [Concomitant]
     Active Substance: URSODIOL
  6. ALEVE [Concomitant]
     Active Substance: NAPROXEN SODIUM
  7. VITAMIN D3 [Concomitant]
     Active Substance: CHOLECALCIFEROL

REACTIONS (10)
  - Eye pruritus [Not Recovered/Not Resolved]
  - Cholangiocarcinoma [Unknown]
  - Carbohydrate antigen 19-9 increased [Unknown]
  - Bile duct stenosis [Unknown]
  - Pruritus [Unknown]
  - Hyperbilirubinaemia [Unknown]
  - Bile duct stone [Unknown]
  - Jaundice [Unknown]
  - Eye haemorrhage [Not Recovered/Not Resolved]
  - Hypersensitivity [Unknown]

NARRATIVE: CASE EVENT DATE: 201608
